FAERS Safety Report 8876792 (Version 1)
Quarter: 2012Q4

REPORT INFORMATION
  Report Type: 
  Country: US (occurrence: US)
  Receive Date: 20121023
  Receipt Date: 20121023
  Transmission Date: 20130627
  Serious: No
  Sender: FDA-Public Use
  Company Number: US-AMGEN-USASP2012041226

PATIENT
  Sex: Female

DRUGS (11)
  1. ENBREL [Suspect]
     Indication: PRODUCT USED FOR UNKNOWN INDICATION
     Dosage: 50 mg, qwk
     Route: 058
  2. CELEBREX [Concomitant]
     Dosage: 50 mg, UNK
  3. ARAVA [Concomitant]
     Dosage: 10 mg, UNK
  4. LISINOPRIL [Concomitant]
     Dosage: 2.5 mg, UNK
  5. HYDROXYCHLOROQUINE [Concomitant]
     Dosage: 200 mg, UNK
  6. PHENOBARB                          /00023201/ [Concomitant]
     Dosage: 15 mg, UNK
  7. CRESTOR [Concomitant]
     Dosage: 5 mg, UNK
  8. MOBIC [Concomitant]
     Dosage: 7.5 mg, UNK
  9. SULFASALAZIN [Concomitant]
     Dosage: 500 mg, UNK
  10. KEPPRA [Concomitant]
     Dosage: 500 mg, UNK
  11. FOLIC ACID [Concomitant]

REACTIONS (5)
  - Hypoaesthesia [Unknown]
  - Visual acuity reduced [Unknown]
  - Erythema [Unknown]
  - Feeling hot [Unknown]
  - Headache [Unknown]
